FAERS Safety Report 6969129-8 (Version None)
Quarter: 2010Q3

REPORT INFORMATION
  Report Type: 
  Country: None (occurrence: None)
  Receive Date: 20100907
  Receipt Date: 20100902
  Transmission Date: 20110219
  Serious: Yes (Other)
  Sender: FDA-Public Use
  Company Number: GXKR2010DE09966

PATIENT
  Sex: Male

DRUGS (2)
  1. CEFUROXIM 1 A PHARMA (NGX) [Suspect]
     Indication: URINE LEUKOCYTE ESTERASE POSITIVE
     Dosage: 500 MG, QD
     Route: 048
  2. INSULIN [Concomitant]

REACTIONS (5)
  - ABDOMINAL PAIN UPPER [None]
  - CIRCULATORY COLLAPSE [None]
  - DIARRHOEA [None]
  - HYPERHIDROSIS [None]
  - VOMITING [None]
